FAERS Safety Report 8480910-9 (Version None)
Quarter: 2012Q3

REPORT INFORMATION
  Report Type: 
  Country: None (occurrence: None)
  Receive Date: 20120702
  Receipt Date: 20120620
  Transmission Date: 20120928
  Serious: Yes (Hospitalization, Other)
  Sender: FDA-Public Use
  Company Number: US-ELI_LILLY_AND_COMPANY-US201206007461

PATIENT
  Sex: Female

DRUGS (1)
  1. FORTEO [Suspect]
     Indication: BONE DISORDER
     Dosage: 20 UG, QD
     Dates: start: 20120201, end: 20120401

REACTIONS (4)
  - EXCORIATION [None]
  - DIZZINESS [None]
  - UPPER LIMB FRACTURE [None]
  - FALL [None]
